FAERS Safety Report 10877593 (Version 2)
Quarter: 2015Q1

REPORT INFORMATION
  Report Type: Spontaneous
  Country: US (occurrence: US)
  Receive Date: 20150302
  Receipt Date: 20150306
  Transmission Date: 20150721
  Serious: No
  Sender: FDA-Public Use
  Company Number: US-009507513-1503USA000066

PATIENT
  Sex: Female

DRUGS (1)
  1. DULERA [Suspect]
     Active Substance: FORMOTEROL FUMARATE DIHYDRATE\MOMETASONE FUROATE
     Dosage: 2 PUFFS IN THE AM AND 2 PUFFS IN PM
     Route: 055
     Dates: start: 2009

REACTIONS (3)
  - Device malfunction [Unknown]
  - No adverse event [Unknown]
  - Drug dose omission [Unknown]
